FAERS Safety Report 8530807-0 (Version None)
Quarter: 2012Q3

REPORT INFORMATION
  Report Type: 
  Country: None (occurrence: None)
  Receive Date: 20120723
  Receipt Date: 20120720
  Transmission Date: 20120928
  Serious: Yes (Other)
  Sender: FDA-Public Use
  Company Number: US-PFIZER INC-2012176279

PATIENT

DRUGS (1)
  1. HEPARIN SODIUM [Suspect]
     Dosage: 1000 IU/ML, SINGLE
     Route: 042

REACTIONS (1)
  - CEREBROVASCULAR ACCIDENT [None]
